FAERS Safety Report 20425717 (Version 1)
Quarter: 2022Q1

REPORT INFORMATION
  Report Type: Report from Study
  Country: US (occurrence: US)
  Receive Date: 20220204
  Receipt Date: 20220204
  Transmission Date: 20220423
  Serious: No
  Sender: FDA-Public Use
  Company Number: US-EXELIXIS-CABO-21039991

PATIENT
  Age: 60 Year
  Sex: Male

DRUGS (2)
  1. CABOMETYX [Suspect]
     Active Substance: CABOZANTINIB S-MALATE
     Indication: Renal cancer
     Dosage: 60 MG, QD
     Route: 048
     Dates: start: 20210413
  2. CABOMETYX [Suspect]
     Active Substance: CABOZANTINIB S-MALATE
     Dosage: 60 MG, QD
     Route: 048
     Dates: start: 202104

REACTIONS (13)
  - Fall [Recovered/Resolved]
  - Drug intolerance [Unknown]
  - Muscular weakness [Unknown]
  - Faeces hard [Unknown]
  - Dyschezia [Unknown]
  - Fall [Unknown]
  - Frequent bowel movements [Unknown]
  - Spinal disorder [Unknown]
  - Back pain [Unknown]
  - Headache [Unknown]
  - Diarrhoea [Unknown]
  - Rib fracture [Unknown]
  - Ankle fracture [Unknown]

NARRATIVE: CASE EVENT DATE: 20210401
